FAERS Safety Report 5472627-X (Version None)
Quarter: 2007Q4

REPORT INFORMATION
  Report Type: 
  Country: None (occurrence: None)
  Receive Date: 20071001
  Receipt Date: 20060817
  Transmission Date: 20080405
  Serious: Yes (Other)
  Sender: FDA-Public Use
  Company Number: US-ASTRAZENECA-2006UW15466

PATIENT
  Age: 68 Year
  Sex: Female
  Weight: 81.2 kg

DRUGS (6)
  1. ARIMIDEX [Suspect]
     Indication: BREAST CANCER
     Route: 048
     Dates: start: 20050101
  2. RADIATION [Concomitant]
  3. TRICOR [Concomitant]
  4. COZAAR [Concomitant]
  5. GLUCOPHAGE [Concomitant]
  6. FISH OIL [Concomitant]

REACTIONS (3)
  - ARTHRALGIA [None]
  - DISEASE PROGRESSION [None]
  - PAIN IN JAW [None]
